FAERS Safety Report 8372844-5 (Version None)
Quarter: 2012Q2

REPORT INFORMATION
  Report Type: 
  Country: None (occurrence: None)
  Receive Date: 20120521
  Receipt Date: 20120518
  Transmission Date: 20120825
  Serious: Yes (Other)
  Sender: FDA-Public Use
  Company Number: US-PFIZER INC-2012121498

PATIENT
  Sex: Female
  Weight: 58.957 kg

DRUGS (17)
  1. ZOLMITRIPTAN [Concomitant]
     Indication: CLUSTER HEADACHE
     Dosage: UNK,AS NEEDED
     Route: 048
  2. SEROQUEL [Suspect]
     Dosage: 800 MG, 1X/DAY
  3. LAMICTAL [Suspect]
     Indication: MANIA
  4. LAMICTAL [Suspect]
  5. ACETYLSALICYLIC ACID [Concomitant]
     Indication: ANTIPLATELET THERAPY
     Dosage: 81 MG, 1X/DAY
  6. FIORICET [Concomitant]
     Indication: CLUSTER HEADACHE
     Dosage: UNK
  7. EFFEXOR XR [Suspect]
     Indication: ANTIDEPRESSANT THERAPY
     Dosage: 75 MG, 2X/DAY
     Route: 048
  8. LAMICTAL [Suspect]
     Indication: CONVULSION
     Dosage: 200 MG, 2X/DAY
  9. LESCOL [Concomitant]
     Indication: BLOOD CHOLESTEROL ABNORMAL
     Dosage: 20 MG, 1X/DAY
  10. ZOMIG [Concomitant]
     Indication: CLUSTER HEADACHE
     Dosage: UNK,AS NEEDED
     Route: 045
  11. TIGAN [Concomitant]
     Indication: NAUSEA
     Dosage: UNK
  12. ATIVAN [Concomitant]
     Indication: ANXIETY
     Dosage: 2 MG, 3X/DAY
  13. LAMICTAL [Suspect]
     Indication: BIPOLAR DISORDER
  14. SEROQUEL [Suspect]
     Indication: ANTIDEPRESSANT THERAPY
     Dosage: 200 MG, DAILY
  15. NICORETTE [Suspect]
     Indication: SMOKING CESSATION THERAPY
     Dosage: UNK
     Route: 048
  16. NEXIUM [Concomitant]
     Indication: ABDOMINAL PAIN
     Dosage: 4 MG, 1X/DAY
  17. LORATADINE [Concomitant]
     Indication: HYPERSENSITIVITY
     Dosage: UNK

REACTIONS (4)
  - ACCIDENT [None]
  - GAIT DISTURBANCE [None]
  - PAIN IN EXTREMITY [None]
  - LIMB CRUSHING INJURY [None]
